FAERS Safety Report 15214868 (Version 3)
Quarter: 2018Q4

REPORT INFORMATION
  Report Type: Spontaneous
  Country: AT (occurrence: AT)
  Receive Date: 20180730
  Receipt Date: 20180907
  Transmission Date: 20190204
  Serious: Yes (Other)
  Sender: FDA-Public Use
  Company Number: AT-PFIZER INC-2018297087

PATIENT
  Age: 21 Year
  Sex: Female
  Weight: 45 kg

DRUGS (25)
  1. CIPRALEX [Suspect]
     Active Substance: ESCITALOPRAM OXALATE
     Dosage: 10 MG, UNK
     Dates: start: 20180515, end: 20180524
  2. LAMICTAL [Suspect]
     Active Substance: LAMOTRIGINE
     Dosage: 100 MG, UNK
     Dates: start: 20180605, end: 20180619
  3. ZYPREXA [Suspect]
     Active Substance: OLANZAPINE
     Dosage: 5 MG, UNK
     Dates: start: 20180424, end: 20180429
  4. ACETYLIC ACID [Suspect]
     Active Substance: ASPIRIN
     Dosage: 80 MG, 1X/DAY
     Dates: start: 20180615, end: 20180619
  5. TEMESTA (LORAZEPAM) [Suspect]
     Active Substance: LORAZEPAM
     Dosage: 2-5 MG
     Dates: start: 20180430
  6. TRITTICO [Suspect]
     Active Substance: TRAZODONE HYDROCHLORIDE
     Dosage: 50 MG, UNK
     Dates: start: 20180420, end: 20180420
  7. ACETYLIC ACID [Suspect]
     Active Substance: ASPIRIN
     Dosage: 40 MG, 1X/DAY
     Dates: start: 20180525, end: 20180614
  8. SEROQUEL [Suspect]
     Active Substance: QUETIAPINE FUMARATE
     Dosage: 100 MG, UNK
     Dates: start: 20180426, end: 20180429
  9. TRITTICO [Suspect]
     Active Substance: TRAZODONE HYDROCHLORIDE
     Dosage: 150 MG, UNK
     Dates: end: 20180429
  10. CIPRALEX [Suspect]
     Active Substance: ESCITALOPRAM OXALATE
     Dosage: 5 MG, UNK
     Dates: start: 20180507, end: 20180514
  11. SEROQUEL [Suspect]
     Active Substance: QUETIAPINE FUMARATE
     Dosage: 75 MG, UNK
     Dates: start: 20180424, end: 20180425
  12. QUILONORM /00033702/ [Concomitant]
     Active Substance: LITHIUM CARBONATE
     Dosage: 225 MG, UNK
     Dates: start: 20180605, end: 20180607
  13. ZOLDEM [Concomitant]
     Active Substance: ZOLPIDEM TARTRATE
     Dosage: 10 MG, UNK
     Dates: start: 20180612, end: 20180619
  14. DOMINAL (PROTHIPENDYL HYDROCHLORIDE) [Suspect]
     Active Substance: PROTHIPENDYL HYDROCHLORIDE
     Dosage: 40 MG, UNK
     Dates: start: 20180525, end: 20180614
  15. DOMINAL (PROTHIPENDYL HYDROCHLORIDE) [Suspect]
     Active Substance: PROTHIPENDYL HYDROCHLORIDE
     Dosage: 80 MG, UNK
     Dates: start: 20180615, end: 20180619
  16. ACETYLIC ACID [Suspect]
     Active Substance: ASPIRIN
     Dosage: 80 MG, 1X/DAY
     Route: 065
     Dates: start: 20180430, end: 20180502
  17. HALCION [Concomitant]
     Active Substance: TRIAZOLAM
     Dosage: 0.25 MG, UNK
     Dates: start: 20180523, end: 20180611
  18. DOMINAL (PROTHIPENDYL HYDROCHLORIDE) [Suspect]
     Active Substance: PROTHIPENDYL HYDROCHLORIDE
     Dosage: 80 MG, UNK
     Dates: start: 20180430, end: 20180502
  19. GEWACALM [Suspect]
     Active Substance: DIAZEPAM
     Dosage: 5 MG, UNK
     Dates: start: 20180504, end: 20180510
  20. ZYPREXA [Suspect]
     Active Substance: OLANZAPINE
     Dosage: 2.5 MG, UNK
     Dates: start: 20180422, end: 20180423
  21. TRITTICO [Suspect]
     Active Substance: TRAZODONE HYDROCHLORIDE
     Dosage: 100 MG, UNK
     Dates: start: 20180421
  22. LAMICTAL [Suspect]
     Active Substance: LAMOTRIGINE
     Dosage: 25 MG, UNK
     Dates: start: 20180514, end: 20180524
  23. LAMICTAL [Suspect]
     Active Substance: LAMOTRIGINE
     Dosage: 50 MG, UNK
     Dates: start: 20180525, end: 20180604
  24. GEWACALM [Suspect]
     Active Substance: DIAZEPAM
     Dosage: 10 MG, UNK
     Dates: start: 20180511, end: 20180611
  25. GEWACALM [Suspect]
     Active Substance: DIAZEPAM
     Dosage: 15 MG, UNK
     Dates: start: 20180612, end: 20180619

REACTIONS (1)
  - Neutropenia [Recovering/Resolving]

NARRATIVE: CASE EVENT DATE: 20180421
